FAERS Safety Report 9384190 (Version 1)
Quarter: 2013Q3

REPORT INFORMATION
  Report Type: Spontaneous
  Country: US (occurrence: None)
  Receive Date: 20130702
  Receipt Date: 20130702
  Transmission Date: 20140515
  Serious: Yes (Life-Threatening, Hospitalization)
  Sender: FDA-Public Use
  Company Number: None

PATIENT
  Age: 78 Year
  Sex: Male
  Weight: 105 kg

DRUGS (2)
  1. XARELTO 20MG JANSSEN [Suspect]
     Indication: PULMONARY EMBOLISM
     Route: 048
     Dates: start: 201212, end: 20130624
  2. ASPIRIN [Suspect]
     Indication: PULMONARY EMBOLISM
     Route: 048
     Dates: start: 201212, end: 20130624

REACTIONS (2)
  - Haematemesis [None]
  - Faeces discoloured [None]
